FAERS Safety Report 14954477 (Version 1)
Quarter: 2018Q3

REPORT INFORMATION
  Report Type: Spontaneous
  Country: US (occurrence: US)
  Receive Date: 20180530
  Receipt Date: 20180530
  Transmission Date: 20181010
  Serious: No
  Sender: FDA-Public Use
  Company Number: US-HAEMONETICS CORP-2048718

PATIENT
  Age: 21 Year
  Sex: Female
  Weight: 78.18 kg

DRUGS (2)
  1. HAEMONETICS ANTICOAGULANT SODIUM CITRATE [Suspect]
     Active Substance: TRISODIUM CITRATE DIHYDRATE
     Indication: ANTICOAGULANT THERAPY
     Route: 042
     Dates: start: 20170925, end: 20170925
  2. HAEMONETICS ANTICOAGULANT SODIUM CITRATE [Suspect]
     Active Substance: TRISODIUM CITRATE DIHYDRATE
     Indication: APHERESIS
     Route: 042
     Dates: start: 20170925, end: 20170925

REACTIONS (3)
  - Procedural vomiting [None]
  - Procedural hypotension [None]
  - Hypotension [Recovered/Resolved]

NARRATIVE: CASE EVENT DATE: 20170925
